FAERS Safety Report 4793474-8 (Version None)
Quarter: 2005Q4

REPORT INFORMATION
  Report Type: 
  Country: None (occurrence: None)
  Receive Date: 20051011
  Receipt Date: 20050628
  Transmission Date: 20060501
  Serious: No
  Sender: FDA-Public Use
  Company Number: US-BRISTOL-MYERS SQUIBB COMPANY-13017751

PATIENT
  Sex: Male

DRUGS (3)
  1. GLUCOPHAGE XR [Suspect]
     Indication: DIABETES MELLITUS NON-INSULIN-DEPENDENT
  2. ACTOS [Concomitant]
  3. DIGOXIN [Concomitant]

REACTIONS (1)
  - BLOOD CREATININE INCREASED [None]
